FAERS Safety Report 7888746-4 (Version None)
Quarter: 2011Q4

REPORT INFORMATION
  Report Type: 
  Country: None (occurrence: None)
  Receive Date: 20111101
  Receipt Date: 20111013
  Transmission Date: 20120403
  Serious: No
  Sender: FDA-Public Use
  Company Number: 2011-01298

PATIENT
  Age: 54 Year
  Sex: Female
  Weight: 83.9154 kg

DRUGS (9)
  1. VIVELLE-DOT [Concomitant]
  2. LOVAZA [Concomitant]
  3. VITAMIN D [Concomitant]
  4. ZICAM COLD REMEDY PLUS LIQUI-LOZ [Suspect]
     Indication: NASOPHARYNGITIS
     Dosage: 1 DOSE
     Dates: start: 20111013
  5. ZYRTEC [Concomitant]
  6. COQ10 [Concomitant]
  7. PRILOSEC [Concomitant]
  8. ASPIRIN [Concomitant]
  9. MULTI-VITAMIN [Concomitant]

REACTIONS (2)
  - DYSGEUSIA [None]
  - AGEUSIA [None]
